FAERS Safety Report 20324418 (Version 1)
Quarter: 2022Q1

REPORT INFORMATION
  Report Type: Spontaneous
  Country: US (occurrence: US)
  Receive Date: 20220111
  Receipt Date: 20220111
  Transmission Date: 20220423
  Serious: No
  Sender: FDA-Public Use
  Company Number: US-ANIPHARMA-2021-US-017344

PATIENT
  Age: 25 Year
  Sex: Male

DRUGS (5)
  1. FLUVOXAMINE [Suspect]
     Active Substance: FLUVOXAMINE
     Indication: Autism spectrum disorder
     Route: 065
  2. REXULTI [Suspect]
     Active Substance: BREXPIPRAZOLE
     Dosage: 0.5 MG, UNKNOWN/0.25 MG IN THE AM, UNKNOWN/ HALF OF 0.25 MG, UNKNOWN
     Dates: start: 202105
  3. LATUDA [Concomitant]
     Active Substance: LURASIDONE HYDROCHLORIDE
  4. BENZTROPINE [Concomitant]
     Active Substance: BENZTROPINE
  5. DEPAKOTE [Concomitant]
     Active Substance: DIVALPROEX SODIUM
     Route: 065

REACTIONS (11)
  - Drug hypersensitivity [Unknown]
  - Mood altered [Unknown]
  - COVID-19 [Unknown]
  - Insomnia [Unknown]
  - Product use in unapproved indication [Unknown]
  - Off label use [Unknown]
  - Abnormal behaviour [Unknown]
  - Food craving [Unknown]
  - Sleep disorder [Unknown]
  - Irritability [Unknown]
  - Treatment noncompliance [Unknown]
